FAERS Safety Report 18980085 (Version 1)
Quarter: 2021Q1

REPORT INFORMATION
  Report Type: Report from Study
  Country: JP (occurrence: JP)
  Receive Date: 20210308
  Receipt Date: 20210308
  Transmission Date: 20210420
  Serious: Yes (Death, Life-Threatening, Hospitalization, Other)
  Sender: FDA-Public Use
  Company Number: JP-ASTELLAS-2021US002951

PATIENT
  Age: 16 Year
  Sex: Female
  Weight: 41 kg

DRUGS (27)
  1. ACICLOVIR [Suspect]
     Active Substance: ACYCLOVIR
     Route: 041
     Dates: start: 20150511, end: 20150522
  2. FUNGUARD [Suspect]
     Active Substance: MICAFUNGIN SODIUM
     Indication: BRONCHOPULMONARY ASPERGILLOSIS
     Route: 065
     Dates: start: 20150520, end: 20150605
  3. KENKETU GLOVENIN?I [Suspect]
     Active Substance: HUMAN IMMUNOGLOBULIN G
     Route: 065
     Dates: start: 20150511, end: 20150511
  4. DECADRON [Suspect]
     Active Substance: DEXAMETHASONE
     Indication: BLAST CELL COUNT INCREASED
     Route: 048
     Dates: start: 20150603, end: 20150605
  5. JAKAVI [RUXOLITINIB] [Suspect]
     Active Substance: RUXOLITINIB
     Indication: PRIMARY MYELOFIBROSIS
     Route: 048
     Dates: start: 20150120, end: 20150125
  6. AMPHOTERICIN B, LIPOSOME [Suspect]
     Active Substance: AMPHOTERICIN B
     Indication: BRONCHOPULMONARY ASPERGILLOSIS
     Route: 042
  7. ACICLOVIR [Suspect]
     Active Substance: ACYCLOVIR
     Indication: HERPES ZOSTER
     Route: 041
     Dates: start: 20150409, end: 20150417
  8. MEROPENEM. [Suspect]
     Active Substance: MEROPENEM
     Indication: SEPSIS
     Route: 065
     Dates: start: 20150608
  9. AMIKACIN SULFATE. [Suspect]
     Active Substance: AMIKACIN SULFATE
     Indication: SEPSIS
     Route: 065
     Dates: start: 20150423
  10. ACICLOVIR [Suspect]
     Active Substance: ACYCLOVIR
     Route: 041
     Dates: start: 20150523, end: 20150605
  11. KENKETU GLOVENIN?I [Suspect]
     Active Substance: HUMAN IMMUNOGLOBULIN G
     Indication: PYREXIA
     Route: 065
     Dates: start: 20150209, end: 20150210
  12. KENKETU GLOVENIN?I [Suspect]
     Active Substance: HUMAN IMMUNOGLOBULIN G
     Indication: HERPES ZOSTER
     Route: 065
     Dates: start: 20150409, end: 20150411
  13. CEFTAZIDIME. [Suspect]
     Active Substance: CEFTAZIDIME
     Indication: PYREXIA
     Route: 065
     Dates: start: 20150423
  14. DECADRON [Suspect]
     Active Substance: DEXAMETHASONE
     Indication: SEIZURE
     Route: 048
     Dates: start: 20150316, end: 20150320
  15. DECADRON [Suspect]
     Active Substance: DEXAMETHASONE
     Indication: ACUTE LYMPHOCYTIC LEUKAEMIA
     Route: 048
     Dates: start: 20150420, end: 20150428
  16. JAKAVI [RUXOLITINIB] [Suspect]
     Active Substance: RUXOLITINIB
     Route: 048
     Dates: start: 20150202, end: 20150313
  17. PLATELETS [Concomitant]
     Active Substance: HUMAN PLATELET, ALLOGENIC
     Indication: PRODUCT USED FOR UNKNOWN INDICATION
     Dosage: UNK UNK, UNKNOWN FREQ.
     Route: 065
  18. DIFLUCAN [Concomitant]
     Active Substance: FLUCONAZOLE
     Indication: PRODUCT USED FOR UNKNOWN INDICATION
     Dosage: UNK UNK, UNKNOWN FREQ.
     Route: 065
  19. BACTRAMIN [Concomitant]
     Active Substance: SULFAMETHOXAZOLE\TRIMETHOPRIM
     Indication: PRODUCT USED FOR UNKNOWN INDICATION
     Dosage: UNK UNK, UNKNOWN FREQ.
     Route: 065
  20. AMIKACIN SULFATE. [Suspect]
     Active Substance: AMIKACIN SULFATE
     Indication: PYREXIA
     Route: 065
     Dates: start: 20150209, end: 20150210
  21. JAKAVI [RUXOLITINIB] [Suspect]
     Active Substance: RUXOLITINIB
     Route: 048
     Dates: start: 20150126, end: 20150201
  22. JAKAVI [RUXOLITINIB] [Suspect]
     Active Substance: RUXOLITINIB
     Route: 048
     Dates: start: 20150321, end: 20150609
  23. ONCOVIN [Suspect]
     Active Substance: VINCRISTINE SULFATE
     Indication: BLAST CELL COUNT INCREASED
     Route: 065
     Dates: start: 20150316, end: 20150316
  24. FOSTOIN [Suspect]
     Active Substance: FOSPHENYTOIN SODIUM
     Indication: SEIZURE
     Route: 065
     Dates: start: 20150603
  25. PLATELETS [Concomitant]
     Active Substance: HUMAN PLATELET, ALLOGENIC
     Indication: PRODUCT USED FOR UNKNOWN INDICATION
     Dosage: UNK UNK, UNKNOWN FREQ.
     Route: 065
  26. CEFTAZIDIME. [Suspect]
     Active Substance: CEFTAZIDIME
     Indication: SEPSIS
     Route: 065
     Dates: start: 20150209, end: 20150210
  27. RED CELLS CONCENTRATES?LEUKOCYTES REDUCED [Concomitant]
     Active Substance: HUMAN RED BLOOD CELL
     Indication: PRODUCT USED FOR UNKNOWN INDICATION
     Dosage: UNK UNK, UNKNOWN FREQ.
     Route: 065

REACTIONS (23)
  - Red blood cell count decreased [Not Recovered/Not Resolved]
  - Rash [Unknown]
  - Acute lymphocytic leukaemia [Fatal]
  - White blood cell count decreased [Not Recovered/Not Resolved]
  - Blood pressure decreased [Unknown]
  - Blast cell count increased [Fatal]
  - Myelosuppression [Not Recovered/Not Resolved]
  - Seizure [Not Recovered/Not Resolved]
  - Sepsis [Not Recovered/Not Resolved]
  - Hepatic function abnormal [Recovered/Resolved]
  - Lymphocyte percentage decreased [Not Recovered/Not Resolved]
  - Respiratory disorder [Fatal]
  - Pyrexia [Unknown]
  - Herpes zoster [Unknown]
  - Gamma-glutamyltransferase increased [Not Recovered/Not Resolved]
  - Platelet count decreased [Not Recovered/Not Resolved]
  - Pyrexia [Recovered/Resolved]
  - Diarrhoea [Recovered/Resolved]
  - Wheezing [Fatal]
  - Bronchopulmonary aspergillosis [Not Recovered/Not Resolved]
  - C-reactive protein increased [Unknown]
  - Concomitant disease aggravated [Fatal]
  - Haemoglobin decreased [Not Recovered/Not Resolved]

NARRATIVE: CASE EVENT DATE: 20150120
